FAERS Safety Report 15239735 (Version 5)
Quarter: 2019Q2

REPORT INFORMATION
  Report Type: Report from Study
  Country: US (occurrence: US)
  Receive Date: 20180803
  Receipt Date: 20190603
  Transmission Date: 20190711
  Serious: Yes (Hospitalization)
  Sender: FDA-Public Use
  Company Number: PHEH2018US032286

PATIENT
  Age: 68 Year
  Sex: Male

DRUGS (1)
  1. GILENYA [Suspect]
     Active Substance: FINGOLIMOD HYDROCHLORIDE
     Indication: MULTIPLE SCLEROSIS
     Dosage: 0.5 MG, QD
     Route: 048
     Dates: start: 20180201

REACTIONS (8)
  - Multiple sclerosis relapse [Recovering/Resolving]
  - Facial pain [Not Recovered/Not Resolved]
  - Memory impairment [Unknown]
  - Therapeutic response decreased [Unknown]
  - Trigeminal neuralgia [Unknown]
  - Incontinence [Unknown]
  - Gait disturbance [Unknown]
  - Mental impairment [Unknown]

NARRATIVE: CASE EVENT DATE: 20180619
